FAERS Safety Report 9209075 (Version 1)
Quarter: 2013Q2

REPORT INFORMATION
  Report Type: Report from Study
  Country: US (occurrence: US)
  Receive Date: 20130404
  Receipt Date: 20130404
  Transmission Date: 20140414
  Serious: Yes (Hospitalization, Other)
  Sender: FDA-Public Use
  Company Number: PHHY2013US031747

PATIENT
  Age: 71 Year
  Sex: Female
  Weight: 52.1 kg

DRUGS (2)
  1. EVEROLIMUS [Suspect]
     Indication: OVARIAN EPITHELIAL CANCER
     Dosage: 10 UNK, UNK
     Route: 048
     Dates: start: 20120504
  2. BEVACIZUMAB [Suspect]
     Indication: OVARIAN EPITHELIAL CANCER
     Dosage: 10 MG/KG, UNK
     Route: 042
     Dates: start: 20120504

REACTIONS (6)
  - Pleuritic pain [Recovering/Resolving]
  - Musculoskeletal chest pain [Recovering/Resolving]
  - Dyspnoea [Recovering/Resolving]
  - Aortic aneurysm [Recovering/Resolving]
  - Pulmonary embolism [Recovering/Resolving]
  - Pericarditis [Recovering/Resolving]
